FAERS Safety Report 8261873-8 (Version None)
Quarter: 2012Q2

REPORT INFORMATION
  Report Type: 
  Country: None (occurrence: None)
  Receive Date: 20120405
  Receipt Date: 20120330
  Transmission Date: 20120825
  Serious: Yes (Hospitalization, Other)
  Sender: FDA-Public Use
  Company Number: JP-B.I. PHARMACEUTICALS,INC./RIDGEFIELD-2012-BP-04345NB

PATIENT
  Sex: Male

DRUGS (4)
  1. PRADAXA [Suspect]
     Indication: ATRIAL FIBRILLATION
     Dosage: 220 MG
     Route: 048
     Dates: start: 20110501, end: 20111220
  2. FAMOTIDINE [Concomitant]
     Dosage: 20 MG
     Route: 065
     Dates: start: 20050101
  3. ASPIRIN [Concomitant]
     Dosage: 100 MG
     Route: 048
     Dates: start: 20050101
  4. CRESTOR [Concomitant]
     Dosage: 5 MG
     Route: 065
     Dates: start: 20050101

REACTIONS (2)
  - EMBOLIC STROKE [None]
  - PERIPHERAL EMBOLISM [None]
